FAERS Safety Report 24980509 (Version 1)
Quarter: 2025Q1

REPORT INFORMATION
  Report Type: Spontaneous
  Country: US (occurrence: US)
  Receive Date: 20250218
  Receipt Date: 20250218
  Transmission Date: 20250408
  Serious: Yes (Other)
  Sender: UPSHER SMITH LABORATORIES
  Company Number: US-UPSHER-SMITH LABORATORIES, LLC-20250200499

PATIENT
  Age: 78 Year
  Sex: Female
  Weight: 76.19 kg

DRUGS (6)
  1. MOXIFLOXACIN [Suspect]
     Active Substance: MOXIFLOXACIN
     Indication: Prophylaxis
     Dates: start: 20250201, end: 20250202
  2. MOXIFLOXACIN [Suspect]
     Active Substance: MOXIFLOXACIN
     Dates: start: 20250127, end: 20250201
  3. MOXIFLOXACIN [Suspect]
     Active Substance: MOXIFLOXACIN
     Route: 065
     Dates: start: 202501, end: 2025
  4. THYROXINE [Concomitant]
     Active Substance: LEVOTHYROXINE
     Indication: Thyroid disorder
     Route: 065
  5. GABAPENTIN [Concomitant]
     Active Substance: GABAPENTIN
     Indication: Restlessness
     Route: 065
  6. GABAPENTIN [Concomitant]
     Active Substance: GABAPENTIN
     Route: 065

REACTIONS (3)
  - Eye disorder [Recovering/Resolving]
  - Vitreous floaters [Recovering/Resolving]
  - Eye infection bacterial [Unknown]

NARRATIVE: CASE EVENT DATE: 20250201
